FAERS Safety Report 7001049-5 (Version None)
Quarter: 2010Q3

REPORT INFORMATION
  Report Type: 
  Country: None (occurrence: None)
  Receive Date: 20100920
  Receipt Date: 20070517
  Transmission Date: 20110219
  Serious: Yes (Hospitalization, Other)
  Sender: FDA-Public Use
  Company Number: US-ASTRAZENECA-2006UW22775

PATIENT
  Age: 469 Month
  Sex: Female
  Weight: 87.1 kg

DRUGS (9)
  1. SEROQUEL [Suspect]
     Indication: BIPOLAR DISORDER
     Route: 048
     Dates: start: 20020401, end: 20060901
  2. SEROQUEL [Suspect]
     Route: 048
     Dates: start: 20040716, end: 20060411
  3. RISPERDAL [Concomitant]
     Dates: start: 20010101
  4. THORAZINE [Concomitant]
     Dates: start: 19990101
  5. ZYPREXA [Concomitant]
     Dates: start: 20020101, end: 20030101
  6. GREEN TEA PILLS [Concomitant]
  7. DIET SMART [Concomitant]
  8. WELLBUTRIN [Concomitant]
     Route: 048
     Dates: start: 20050315
  9. NEURONTIN [Concomitant]
     Route: 048
     Dates: start: 20041031

REACTIONS (4)
  - ANGINA PECTORIS [None]
  - CHEST PAIN [None]
  - DIABETES MELLITUS [None]
  - TYPE 2 DIABETES MELLITUS [None]
